FAERS Safety Report 19240831 (Version 1)
Quarter: 2021Q2

REPORT INFORMATION
  Report Type: Spontaneous
  Country: CN (occurrence: CN)
  Receive Date: 20210510
  Receipt Date: 20210510
  Transmission Date: 20210717
  Serious: Yes (Other)
  Sender: FDA-Public Use
  Company Number: CN-PFIZER INC-2021466370

PATIENT
  Age: 42 Year
  Sex: Male
  Weight: 63 kg

DRUGS (1)
  1. SOLU?MEDROL [Suspect]
     Active Substance: METHYLPREDNISOLONE SODIUM SUCCINATE
     Indication: HYPERPARATHYROIDISM
     Dosage: 40.000 MG, 1X/DAY
     Route: 041
     Dates: start: 20210323, end: 20210324

REACTIONS (3)
  - Muscular weakness [Recovering/Resolving]
  - Blood potassium decreased [Unknown]
  - Quadriplegia [Recovering/Resolving]

NARRATIVE: CASE EVENT DATE: 20210324
